FAERS Safety Report 6138587-3 (Version None)
Quarter: 2009Q1

REPORT INFORMATION
  Report Type: 
  Country: None (occurrence: None)
  Receive Date: 20090331
  Receipt Date: 20090318
  Transmission Date: 20090719
  Serious: Yes (Hospitalization)
  Sender: FDA-Public Use
  Company Number: FR-ELI_LILLY_AND_COMPANY-FR200903004352

PATIENT
  Sex: Female

DRUGS (16)
  1. ZYPREXA [Suspect]
     Indication: ABNORMAL BEHAVIOUR
     Dosage: 20 MG, DAILY (1/D)
     Route: 048
     Dates: start: 20081113, end: 20081125
  2. ZYPREXA [Suspect]
     Indication: ABNORMAL BEHAVIOUR
     Dosage: 10 MG, DAILY (1/D)
     Route: 030
     Dates: start: 20081126, end: 20081126
  3. EFFEXOR [Concomitant]
     Dosage: 37.5 MG, UNK
     Route: 048
     Dates: start: 20081126, end: 20081126
  4. ANAFRANIL [Concomitant]
     Dosage: 2 D/F, DAILY (1/D)
     Route: 048
     Dates: start: 20081127, end: 20081128
  5. ANAFRANIL [Concomitant]
     Dosage: 2 D/F, DAILY (1/D)
     Dates: start: 20081202
  6. FRAXIPARINE [Concomitant]
     Dosage: 1.6 ML, DAILY (1/D)
     Route: 058
     Dates: start: 20081123, end: 20081201
  7. CLAMOXYL /NET/ [Concomitant]
     Dosage: 3 G, DAILY (1/D)
     Route: 048
     Dates: start: 20081119, end: 20081120
  8. LOXAPAC [Concomitant]
     Indication: ABNORMAL BEHAVIOUR
     Dosage: 90 D/F, UNK
     Route: 048
     Dates: start: 20081112, end: 20081120
  9. NORSET [Concomitant]
     Indication: DEPRESSION
     Dosage: 30 MG, DAILY (1/D)
     Route: 048
     Dates: start: 20081112, end: 20081126
  10. SERESTA [Concomitant]
     Dosage: 3 D/F, DAILY (1/D)
     Route: 048
     Dates: start: 20081112, end: 20081126
  11. FRAXIPARINE [Concomitant]
     Dosage: 1.2 ML, DAILY (1/D)
     Route: 058
     Dates: end: 20081123
  12. LANSOYL [Concomitant]
     Dosage: 1 D/F, DAILY (1/D)
     Route: 048
     Dates: start: 20081120, end: 20081124
  13. NORMACOL [Concomitant]
     Dosage: 1 D/F, DAILY (1/D)
     Route: 048
     Dates: start: 20081120, end: 20081121
  14. TRANXENE [Concomitant]
     Dosage: 4 D/F, DAILY (1/D)
     Route: 042
     Dates: start: 20081123, end: 20081123
  15. TRANXENE [Concomitant]
     Dosage: 20 MG, DAILY (1/D)
     Route: 042
     Dates: start: 20081126, end: 20081126
  16. PLASMALYTE 56 IN 5% DEXTROSE [Concomitant]
     Dates: start: 20081115, end: 20081129

REACTIONS (2)
  - CYTOLYTIC HEPATITIS [None]
  - HEPATIC ENZYME INCREASED [None]
